FAERS Safety Report 5325026-5 (Version None)
Quarter: 2007Q2

REPORT INFORMATION
  Report Type: 
  Country: None (occurrence: None)
  Receive Date: 20070510
  Receipt Date: 20070510
  Transmission Date: 20071010
  Serious: No
  Sender: FDA-Public Use
  Company Number: None

PATIENT
  Age: 54 Year
  Sex: Male
  Weight: 86.1834 kg

DRUGS (1)
  1. PREDNISONE [Suspect]
     Indication: DERMATITIS CONTACT
     Dates: start: 20060406, end: 20060412

REACTIONS (1)
  - ARTHRALGIA [None]
